FAERS Safety Report 4514576-7 (Version None)
Quarter: 2004Q4

REPORT INFORMATION
  Report Type: 
  Country: None (occurrence: None)
  Receive Date: 20040928
  Receipt Date: 20040825
  Transmission Date: 20050328
  Serious: No
  Sender: FDA-Public Use
  Company Number: SP00339

PATIENT
  Age: 73 Year
  Sex: Female
  Weight: 39.4629 kg

DRUGS (1)
  1. XIFAXAN [Suspect]
     Indication: IRRITABLE BOWEL SYNDROME
     Dosage: VARIABLE DOSING, ORAL
     Route: 048
     Dates: start: 20040818

REACTIONS (1)
  - DIARRHOEA [None]
